FAERS Safety Report 17988312 (Version 1)
Quarter: 2020Q3

REPORT INFORMATION
  Report Type: Report from Study
  Country: CN (occurrence: CN)
  Receive Date: 20200707
  Receipt Date: 20200707
  Transmission Date: 20201103
  Serious: Yes (Other)
  Sender: FDA-Public Use
  Company Number: CN-ROCHE-2633574

PATIENT

DRUGS (19)
  1. FILGRASTIM [Suspect]
     Active Substance: FILGRASTIM
     Indication: PRODUCT USED FOR UNKNOWN INDICATION
     Route: 042
  2. INTERFERON ALFA?2A [Suspect]
     Active Substance: INTERFERON ALFA-2A
     Route: 058
  3. INTERFERON ALFA?2B [Suspect]
     Active Substance: INTERFERON ALFA-2B
     Route: 042
  4. PEGINTERFERON ALFA?2B [Suspect]
     Active Substance: PEGINTERFERON ALFA-2B
     Indication: PRODUCT USED FOR UNKNOWN INDICATION
     Route: 058
  5. ASPARAGINASE [Suspect]
     Active Substance: ASPARAGINASE
     Route: 030
  6. PEGFILGRASTIM [Suspect]
     Active Substance: PEGFILGRASTIM
     Indication: PRODUCT USED FOR UNKNOWN INDICATION
     Route: 058
  7. INTERFERON ALFA?2B [Suspect]
     Active Substance: INTERFERON ALFA-2B
     Indication: PRODUCT USED FOR UNKNOWN INDICATION
     Route: 030
  8. PEGYLATED LIPOSOMAL DOXORUBICIN [Suspect]
     Active Substance: DOXORUBICIN
     Indication: PRODUCT USED FOR UNKNOWN INDICATION
     Route: 042
  9. INTERFERON BETA?1A [Suspect]
     Active Substance: INTERFERON BETA-1A
     Route: 058
  10. PEGINTERFERON BETA?1A [Suspect]
     Active Substance: PEGINTERFERON BETA-1A
     Indication: PRODUCT USED FOR UNKNOWN INDICATION
     Route: 058
  11. FILGRASTIM [Suspect]
     Active Substance: FILGRASTIM
     Route: 058
  12. ASPARAGINASE [Suspect]
     Active Substance: ASPARAGINASE
     Indication: PRODUCT USED FOR UNKNOWN INDICATION
     Route: 042
  13. PEGASPARGASE [Suspect]
     Active Substance: PEGASPARGASE
     Indication: PRODUCT USED FOR UNKNOWN INDICATION
     Route: 030
  14. INTERFERON ALFA?2B [Suspect]
     Active Substance: INTERFERON ALFA-2B
     Route: 058
  15. LIPOSOMAL DOXORUBICIN HYDROCHLORIDE [Suspect]
     Active Substance: DOXORUBICIN HYDROCHLORIDE
     Indication: PRODUCT USED FOR UNKNOWN INDICATION
     Route: 042
  16. PEGASPARGASE [Suspect]
     Active Substance: PEGASPARGASE
     Route: 042
  17. INTERFERON ALFA?2A [Suspect]
     Active Substance: INTERFERON ALFA-2A
     Indication: PRODUCT USED FOR UNKNOWN INDICATION
     Route: 030
  18. PEGINTERFERON ALFA?2A. [Suspect]
     Active Substance: PEGINTERFERON ALFA-2A
     Indication: PRODUCT USED FOR UNKNOWN INDICATION
     Route: 058
  19. INTERFERON BETA?1A [Suspect]
     Active Substance: INTERFERON BETA-1A
     Indication: PRODUCT USED FOR UNKNOWN INDICATION
     Route: 030

REACTIONS (21)
  - Pancreatitis acute [Unknown]
  - Neoplasm malignant [Unknown]
  - Rash [Unknown]
  - Neurotoxicity [Unknown]
  - Hepatic steatosis [Unknown]
  - Deep vein thrombosis [Unknown]
  - Diabetes mellitus [Unknown]
  - Pruritus [Unknown]
  - Erythema [Unknown]
  - Herpes zoster [Unknown]
  - Anaphylactic reaction [Unknown]
  - Disorientation [Unknown]
  - Renal disorder [Unknown]
  - Liver disorder [Unknown]
  - Aphasia [Unknown]
  - Neuropathy peripheral [Unknown]
  - Hypersensitivity [Unknown]
  - Infection [Unknown]
  - Nervous system disorder [Unknown]
  - Hepatic enzyme [Unknown]
  - Cardiac failure congestive [Unknown]
